FAERS Safety Report 21739187 (Version 1)
Quarter: 2022Q4

REPORT INFORMATION
  Report Type: Spontaneous
  Country: JP (occurrence: None)
  Receive Date: 20221216
  Receipt Date: 20221216
  Transmission Date: 20230112
  Serious: Yes (Hospitalization)
  Sender: FDA-Public Use
  Company Number: JP-Orion Corporation ORION PHARMA-ENTC2022-0249

PATIENT
  Age: 79 Year
  Sex: Female

DRUGS (2)
  1. STALEVO [Suspect]
     Active Substance: CARBIDOPA\ENTACAPONE\LEVODOPA
     Indication: Parkinson^s disease
     Dosage: L50(; STRENGTH: (50/100/5)MG;  L100(; STRENGTH: (100/100/10)MG
     Route: 048
  2. STALEVO [Suspect]
     Active Substance: CARBIDOPA\ENTACAPONE\LEVODOPA
     Dosage: ROUTE: PEG;?L50(; STRENGTH: (50/100/5)MG;  L100(; STRENGTH: (100/100/10)MG
     Route: 050

REACTIONS (7)
  - Femur fracture [Unknown]
  - Foot fracture [Unknown]
  - Fall [Unknown]
  - Wrong technique in product usage process [Unknown]
  - Incorrect route of product administration [Unknown]
  - Product colour issue [Unknown]
  - Dysphagia [Unknown]
